FAERS Safety Report 8816403 (Version 1)
Quarter: 2012Q4

REPORT INFORMATION
  Report Type: Spontaneous
  Country: US (occurrence: None)
  Receive Date: 20120928
  Receipt Date: 20120928
  Transmission Date: 20130627
  Serious: Yes (Other)
  Sender: FDA-Public Use
  Company Number: None

PATIENT
  Age: 37 Year
  Sex: Male
  Weight: 83.92 kg

DRUGS (2)
  1. CIPROFLOXACIN [Suspect]
     Indication: ABDOMINAL PAIN
     Dosage: 1 tablet, every 12 hours, po
     Route: 048
  2. CIPROFLOXACIN [Suspect]
     Indication: URINARY TRACT INFECTION
     Dosage: 1 tablet, every 12 hours, po
     Route: 048

REACTIONS (4)
  - Hypersensitivity [None]
  - Headache [None]
  - Anxiety [None]
  - Nervousness [None]
